FAERS Safety Report 4874095-5 (Version None)
Quarter: 2005Q4

REPORT INFORMATION
  Report Type: 
  Country: None (occurrence: None)
  Receive Date: 20051201
  Receipt Date: 20050808
  Transmission Date: 20060501
  Serious: No
  Sender: FDA-Public Use
  Company Number: 2005PV000914

PATIENT
  Age: 61 Year
  Sex: Female
  Weight: 74.8435 kg

DRUGS (6)
  1. BYETTA [Suspect]
     Indication: DIABETES MELLITUS NON-INSULIN-DEPENDENT
     Dosage: 5 MCG; BID ; SC
     Route: 058
     Dates: start: 20050805
  2. METFORMIN HCL [Concomitant]
  3. POTASSIUM [Concomitant]
  4. LEVOTHROID [Concomitant]
  5. TOSEMIDE [Concomitant]
  6. ASPIRIN [Concomitant]

REACTIONS (2)
  - EARLY SATIETY [None]
  - NAUSEA [None]
